FAERS Safety Report 24449378 (Version 1)
Quarter: 2024Q4

REPORT INFORMATION
  Report Type: Other
  Country: US (occurrence: US)
  Receive Date: 20241017
  Receipt Date: 20241017
  Transmission Date: 20250115
  Serious: Yes (Hospitalization, Other)
  Sender: UNKNOWN
  Company Number: US-ANIPHARMA-012514

PATIENT
  Age: 64 Year
  Sex: Male

DRUGS (3)
  1. IBUPROFEN [Suspect]
     Active Substance: IBUPROFEN
     Indication: Rheumatoid arthritis
  2. IBUPROFEN [Suspect]
     Active Substance: IBUPROFEN
     Indication: Headache
  3. IBUPROFEN [Suspect]
     Active Substance: IBUPROFEN
     Indication: Rheumatoid arthritis
     Dosage: DAILY FOR 10 YEARS

REACTIONS (2)
  - Intentional product misuse [Unknown]
  - Meningitis aseptic [Recovering/Resolving]
